FAERS Safety Report 5123881-5 (Version None)
Quarter: 2006Q4

REPORT INFORMATION
  Report Type: 
  Country: None (occurrence: None)
  Receive Date: 20061010
  Receipt Date: 20060922
  Transmission Date: 20070319
  Serious: Yes (Hospitalization)
  Sender: FDA-Public Use
  Company Number: DE-GLAXOSMITHKLINE-D0050954A

PATIENT
  Age: 3 Year
  Sex: Female
  Weight: 18.3 kg

DRUGS (1)
  1. LAMICTAL [Suspect]
     Indication: EPILEPSY
     Dosage: 12.5MG TWICE PER DAY
     Route: 065
     Dates: start: 20060901, end: 20060921

REACTIONS (9)
  - ENANTHEMA [None]
  - HEPATITIS [None]
  - HYPOKALAEMIA [None]
  - LYMPHADENOPATHY [None]
  - PANCREATITIS [None]
  - PYREXIA [None]
  - RASH [None]
  - STEVENS-JOHNSON SYNDROME [None]
  - THROMBOCYTOPENIA [None]
